FAERS Safety Report 8549391-0 (Version None)
Quarter: 2012Q3

REPORT INFORMATION
  Report Type: 
  Country: None (occurrence: None)
  Receive Date: 20120730
  Receipt Date: 20120724
  Transmission Date: 20120928
  Serious: Yes (Hospitalization, Disabling, Other)
  Sender: FDA-Public Use
  Company Number: US-TEVA-350170USA

PATIENT
  Age: 57 Year
  Sex: Male

DRUGS (3)
  1. CYCLOSPORINE [Interacting]
  2. SIMVASTATIN [Interacting]
  3. SIMVASTATIN [Suspect]

REACTIONS (12)
  - RENAL IMPAIRMENT [None]
  - RENAL FAILURE [None]
  - ASTHENIA [None]
  - CHROMATURIA [None]
  - RHABDOMYOLYSIS [None]
  - CORONARY ARTERY OCCLUSION [None]
  - FATIGUE [None]
  - MALAISE [None]
  - DRUG INTERACTION [None]
  - RENAL DISORDER [None]
  - MYALGIA [None]
  - BACK PAIN [None]
